FAERS Safety Report 6774077-2 (Version None)
Quarter: 2010Q2

REPORT INFORMATION
  Report Type: 
  Country: None (occurrence: None)
  Receive Date: 20100615
  Receipt Date: 20100615
  Transmission Date: 20101027
  Serious: Yes (Other)
  Sender: FDA-Public Use
  Company Number: None

PATIENT
  Age: 51 Year
  Sex: Female
  Weight: 81.6475 kg

DRUGS (1)
  1. NTG AGE INTEN DEEP WRINKLE SERUM TOPICAL [Suspect]
     Dosage: TOPICAL
     Route: 061

REACTIONS (4)
  - BURNS THIRD DEGREE [None]
  - CAUSTIC INJURY [None]
  - EYE SWELLING [None]
  - SWELLING FACE [None]
